FAERS Safety Report 15291550 (Version 2)
Quarter: 2018Q3

REPORT INFORMATION
  Report Type: Report from Study
  Country: US (occurrence: US)
  Receive Date: 20180817
  Receipt Date: 20180912
  Transmission Date: 20181010
  Serious: Yes (Hospitalization)
  Sender: FDA-Public Use
  Company Number: US-ACTELION-A-NJ2016-137749

PATIENT
  Age: 48 Year
  Sex: Female

DRUGS (3)
  1. OPSUMIT [Suspect]
     Active Substance: MACITENTAN
     Indication: PULMONARY ARTERIAL HYPERTENSION
     Dosage: 10 MG, QD
     Route: 048
     Dates: start: 20160523
  2. TYVASO [Concomitant]
     Active Substance: TREPROSTINIL
  3. ADEMPAS [Concomitant]
     Active Substance: RIOCIGUAT

REACTIONS (26)
  - Restless legs syndrome [Unknown]
  - Chest pain [Unknown]
  - Malaise [Unknown]
  - Cardiac disorder [Unknown]
  - Condition aggravated [Unknown]
  - Rash [Unknown]
  - Wheezing [Unknown]
  - Pneumonia [Unknown]
  - Nausea [Unknown]
  - Concomitant disease aggravated [Unknown]
  - Headache [Unknown]
  - Dyspnoea exertional [Unknown]
  - Asthma [Unknown]
  - Insomnia [Unknown]
  - Fatigue [Unknown]
  - Nasal dryness [Unknown]
  - Dizziness [Unknown]
  - Peripheral swelling [Unknown]
  - Lethargy [Unknown]
  - Nasopharyngitis [Unknown]
  - Dyspepsia [Unknown]
  - Oedema peripheral [Unknown]
  - Pain in extremity [Unknown]
  - Constipation [Unknown]
  - Drug dose omission [Unknown]
  - Dyspnoea [Unknown]

NARRATIVE: CASE EVENT DATE: 20160724
